FAERS Safety Report 4495827-4 (Version None)
Quarter: 2004Q4

REPORT INFORMATION
  Report Type: 
  Country: None (occurrence: None)
  Receive Date: 20041108
  Receipt Date: 20040419
  Transmission Date: 20050328
  Serious: Yes (Hospitalization)
  Sender: FDA-Public Use
  Company Number: NO-GLAXOSMITHKLINE-B0330452A

PATIENT
  Age: 40 Year
  Sex: Female

DRUGS (4)
  1. LAMICTAL [Suspect]
     Indication: EPILEPSY
     Dosage: 25MG PER DAY
     Route: 048
     Dates: start: 20040304, end: 20040317
  2. TEGRETOL [Suspect]
     Indication: EPILEPSY
     Dosage: 100MG TWICE PER DAY
     Dates: start: 20040115, end: 20040308
  3. ZYRTEC [Concomitant]
     Indication: RASH
     Dosage: 5MG PER DAY
     Route: 048
     Dates: start: 20040305
  4. PREDNISOLONE [Concomitant]
     Indication: RASH
     Dosage: 30MG PER DAY
     Route: 048
     Dates: start: 20040305

REACTIONS (4)
  - LEUKOCYTOCLASTIC VASCULITIS [None]
  - PRURITUS [None]
  - RASH MACULAR [None]
  - VASCULITIS [None]
